FAERS Safety Report 8320963-1 (Version None)
Quarter: 2012Q2

REPORT INFORMATION
  Report Type: 
  Country: None (occurrence: None)
  Receive Date: 20120430
  Receipt Date: 20120418
  Transmission Date: 20120825
  Serious: Yes (Hospitalization)
  Sender: FDA-Public Use
  Company Number: FR-JNJFOC-20120204378

PATIENT
  Sex: Female

DRUGS (9)
  1. KETOPROFEN [Concomitant]
     Indication: CERVICAL ROOT PAIN
     Route: 065
     Dates: start: 20120106, end: 20120121
  2. PREDNISONE TAB [Concomitant]
     Indication: INTERVERTEBRAL DISC PROTRUSION
     Route: 065
     Dates: start: 20111209, end: 20111213
  3. PREDNISONE TAB [Concomitant]
     Route: 065
     Dates: start: 20111219, end: 20111223
  4. ACETAMINOPHEN AND TRAMADOL HCL [Suspect]
     Route: 048
     Dates: start: 20111209, end: 20120105
  5. VOLTAREN [Concomitant]
     Indication: INTERVERTEBRAL DISC PROTRUSION
     Route: 065
     Dates: start: 20111224
  6. ACETAMINOPHEN [Concomitant]
     Indication: INTERVERTEBRAL DISC PROTRUSION
     Route: 065
     Dates: start: 20111209, end: 20120106
  7. PREDNISONE TAB [Concomitant]
     Route: 065
     Dates: start: 20111214, end: 20111218
  8. ACETAMINOPHEN AND TRAMADOL HCL [Suspect]
     Indication: PAIN
     Route: 048
     Dates: start: 20120106, end: 20120113
  9. PARACETAMOL [Concomitant]
     Indication: CERVICAL ROOT PAIN
     Route: 065
     Dates: start: 20120106, end: 20120121

REACTIONS (6)
  - NAUSEA [None]
  - DIZZINESS [None]
  - VOMITING [None]
  - HYPERTENSION [None]
  - SYNCOPE [None]
  - MUSCULAR WEAKNESS [None]
